FAERS Safety Report 5441244-X (Version None)
Quarter: 2007Q3

REPORT INFORMATION
  Report Type: 
  Country: None (occurrence: None)
  Receive Date: 20070901
  Receipt Date: 20070822
  Transmission Date: 20080115
  Serious: Yes (Hospitalization, Other)
  Sender: FDA-Public Use
  Company Number: FR-PFIZER INC-2007070777

PATIENT
  Sex: Female

DRUGS (4)
  1. TAHOR [Suspect]
     Route: 048
  2. CIBACENE [Suspect]
     Route: 048
  3. CORTANCYL [Suspect]
     Route: 048
  4. ESIDRIX [Suspect]
     Route: 048

REACTIONS (1)
  - LUNG DISORDER [None]
